FAERS Safety Report 18277328 (Version 1)
Quarter: 2020Q3

REPORT INFORMATION
  Report Type: Spontaneous
  Country: US (occurrence: US)
  Receive Date: 20200915
  Receipt Date: 20200915
  Transmission Date: 20201103
  Serious: No
  Sender: FDA-Public Use
  Company Number: None

PATIENT
  Sex: Female

DRUGS (1)
  1. OCTREOTIDE ACETATE 100MCG/ML FRESENIUS KABI USA [Suspect]
     Active Substance: OCTREOTIDE ACETATE
     Indication: CARCINOID TUMOUR
     Dosage: ?          OTHER STRENGTH:100MCG/ML;OTHER DOSE:100MCG/ML;?
     Route: 058
     Dates: start: 201906

REACTIONS (1)
  - Skin cancer [None]
